FAERS Safety Report 8624518-0 (Version None)
Quarter: 2012Q3

REPORT INFORMATION
  Report Type: 
  Country: None (occurrence: None)
  Receive Date: 20120827
  Receipt Date: 20120820
  Transmission Date: 20120928
  Serious: Yes (Other)
  Sender: FDA-Public Use
  Company Number: CA-JNJFOC-20120810476

PATIENT
  Sex: Female
  Weight: 64.4 kg

DRUGS (4)
  1. TYLENOL W/ CODEINE NO. 4 [Concomitant]
     Route: 065
  2. HYDROMORPH [Concomitant]
     Route: 065
  3. MIRENA [Concomitant]
     Route: 065
  4. REMICADE [Suspect]
     Indication: CROHN'S DISEASE
     Route: 042
     Dates: start: 20120510

REACTIONS (3)
  - DRUG INEFFECTIVE [None]
  - OVARIAN CYST [None]
  - ABDOMINAL PAIN LOWER [None]
